FAERS Safety Report 7438973-5 (Version None)
Quarter: 2011Q2

REPORT INFORMATION
  Report Type: 
  Country: None (occurrence: None)
  Receive Date: 20110426
  Receipt Date: 20110413
  Transmission Date: 20111010
  Serious: Yes (Hospitalization)
  Sender: FDA-Public Use
  Company Number: DK-MYLANLABS-2011S1007940

PATIENT
  Age: 46 Year
  Sex: Female

DRUGS (2)
  1. CARBOPLATIN [Suspect]
     Indication: SMALL CELL LUNG CANCER STAGE UNSPECIFIED
     Dosage: AUC 5 ON DAYS 1-3 OF 3-WEEK CYCLE
     Route: 065
  2. ETOPOSIDE [Suspect]
     Indication: SMALL CELL LUNG CANCER STAGE UNSPECIFIED
     Dosage: 120 MG/M2 ON DAYS 1-3 OF 3-WEEK CYCLE
     Route: 065

REACTIONS (1)
  - NEUTROPENIC COLITIS [None]
